FAERS Safety Report 6340065-3 (Version None)
Quarter: 2009Q3

REPORT INFORMATION
  Report Type: 
  Country: None (occurrence: None)
  Receive Date: 20090903
  Receipt Date: 20090825
  Transmission Date: 20100115
  Serious: Yes (Hospitalization)
  Sender: FDA-Public Use
  Company Number: NL-ABBOTT-09P-114-0593675-00

PATIENT
  Sex: Male

DRUGS (11)
  1. LUCRIN DEPOT 11.25 MG [Suspect]
     Indication: PROSTATE CANCER
     Route: 058
  2. ZOCOR [Concomitant]
     Indication: BLOOD CHOLESTEROL
     Route: 048
  3. MONOCEDOCARD [Concomitant]
     Indication: VASODILATION PROCEDURE
     Route: 048
  4. ANDALAT OROS [Concomitant]
     Indication: VASODILATION PROCEDURE
     Route: 048
  5. ACENACOUMAROL [Concomitant]
     Indication: ANTICOAGULANT THERAPY
     Route: 048
  6. COZAAR [Concomitant]
     Indication: BLOOD PRESSURE DECREASED
     Route: 048
  7. LASIX [Concomitant]
     Indication: URINARY TRACT DISORDER
     Route: 048
  8. LANOXIN [Concomitant]
     Indication: ARRHYTHMIA PROPHYLAXIS
     Route: 048
  9. SOTALLOLHYDROCHLORIDE [Concomitant]
     Indication: DRUG USE FOR UNKNOWN INDICATION
     Route: 048
     Dates: start: 20090601
  10. XATRAL [Concomitant]
     Indication: PROSTATIC DISORDER
     Route: 048
  11. PLAVIX [Concomitant]
     Indication: PROSTATIC DISORDER

REACTIONS (3)
  - ARRHYTHMIA [None]
  - INJECTION SITE OEDEMA [None]
  - INJECTION SITE PAIN [None]
